FAERS Safety Report 15365251 (Version 1)
Quarter: 2018Q3

REPORT INFORMATION
  Report Type: Spontaneous
  Country: US (occurrence: US)
  Receive Date: 20180831
  Receipt Date: 20180831
  Transmission Date: 20181010
  Serious: Yes (Hospitalization)
  Sender: FDA-Public Use
  Company Number: None

PATIENT
  Age: 16 Month
  Sex: Female

DRUGS (7)
  1. VIGABATRIN. [Suspect]
     Active Substance: VIGABATRIN
     Indication: MUSCLE SPASMS
     Route: 048
     Dates: start: 20180315
  2. VITAMIN D [Concomitant]
     Active Substance: CHOLECALCIFEROL
  3. SIMETHICONE (DIMETHICONE) [Concomitant]
     Active Substance: DIMETHICONE
  4. ONFI [Concomitant]
     Active Substance: CLOBAZAM
  5. DIAZEPAM. [Concomitant]
     Active Substance: DIAZEPAM
  6. VIGABATRIN. [Suspect]
     Active Substance: VIGABATRIN
     Indication: EPILEPSY
     Route: 048
     Dates: start: 20180315
  7. LEVITIRACETAM [Concomitant]
     Active Substance: LEVETIRACETAM

REACTIONS (1)
  - Pyrexia [None]

NARRATIVE: CASE EVENT DATE: 20180822
